FAERS Safety Report 20599987 (Version 1)
Quarter: 2022Q1

REPORT INFORMATION
  Report Type: Spontaneous
  Country: US (occurrence: US)
  Receive Date: 20220316
  Receipt Date: 20220316
  Transmission Date: 20220423
  Serious: Yes (Death, Hospitalization)
  Sender: FDA-Public Use
  Company Number: US-CELGENE-USA-20220304629

PATIENT
  Age: 83 Year
  Sex: Male
  Weight: 92.616 kg

DRUGS (1)
  1. REVLIMID [Suspect]
     Active Substance: LENALIDOMIDE
     Indication: B-cell lymphoma
     Dosage: 10 MILLIGRAM
     Route: 048
     Dates: start: 20220120

REACTIONS (1)
  - Death [Fatal]

NARRATIVE: CASE EVENT DATE: 20220224
